FAERS Safety Report 6475031-0 (Version None)
Quarter: 2009Q4

REPORT INFORMATION
  Report Type: 
  Country: None (occurrence: None)
  Receive Date: 20091204
  Receipt Date: 20090715
  Transmission Date: 20100525
  Serious: Yes (Hospitalization)
  Sender: FDA-Public Use
  Company Number: US-ELI_LILLY_AND_COMPANY-US200904000570

PATIENT
  Sex: Female

DRUGS (8)
  1. FORTEO [Suspect]
     Indication: OSTEOPOROSIS
     Dosage: 20 UG, DAILY (1/D)
     Dates: start: 20080901, end: 20081001
  2. FORTEO [Suspect]
     Dosage: 20 UG, DAILY (1/D)
  3. LESCOL XL [Concomitant]
     Dosage: 800 MG, UNK
  4. ZOLOFT [Concomitant]
     Dosage: 50 MG, UNK
  5. ASPIRIN [Concomitant]
     Dosage: 81 MG, UNK
  6. LORATADINE [Concomitant]
     Indication: MULTIPLE ALLERGIES
  7. CALCIUM WITH VITAMIN D [Concomitant]
     Dosage: 600 MG, UNK
  8. CENTRUM SILVER [Concomitant]

REACTIONS (1)
  - AORTIC STENOSIS [None]
